FAERS Safety Report 9799340 (Version 2)
Quarter: 2014Q1

REPORT INFORMATION
  Report Type: Spontaneous
  Country: US (occurrence: US)
  Receive Date: 20140106
  Receipt Date: 20140130
  Transmission Date: 20141002
  Serious: Yes (Other)
  Sender: FDA-Public Use
  Company Number: US-GILEAD-2014-0091160

PATIENT
  Age: 53 Year
  Sex: Male

DRUGS (16)
  1. RANEXA [Suspect]
     Indication: ANGINA PECTORIS
     Dosage: 500 MG, BID
     Route: 048
     Dates: start: 20100903
  2. ASPIRIN [Concomitant]
     Dosage: 325 MG, QD
     Dates: start: 20101008
  3. ASPIRIN [Concomitant]
     Dosage: 81 MG, QD
     Dates: end: 20101008
  4. LIPITOR [Concomitant]
     Dosage: 80 MG, QD
     Dates: start: 20101008
  5. METOPROLOL [Concomitant]
     Indication: ANGINA PECTORIS
     Dosage: 100 MG, QD IN AM
     Dates: start: 20100903
  6. METOPROLOL [Concomitant]
     Indication: PALPITATIONS
     Dosage: 50 MG, QD IN PM
     Dates: start: 20101008
  7. PAROXETINE [Concomitant]
     Dosage: 20 MG, QHS
  8. FERROUS SULFATE [Concomitant]
     Dosage: 325 MG, QD
  9. EXELON                             /01383201/ [Concomitant]
     Dosage: 4.6 MG, QD
     Route: 062
  10. VITAMIN D                          /00107901/ [Concomitant]
     Dosage: 1000 IU, QD
  11. CO-ENZYME Q10 [Concomitant]
     Dosage: 50 MG, BID
     Dates: start: 2013
  12. CO-ENZYME Q10 [Concomitant]
     Dosage: 50 MG, QD
     Dates: end: 2013
  13. VITAMIN B12                        /00056201/ [Concomitant]
     Dosage: 500 ?G, QD
  14. NITROGLYCERIN [Concomitant]
     Route: 060
  15. ATIVAN [Concomitant]
     Indication: ANXIETY
     Dosage: UNK, PRN
     Dates: start: 20111205
  16. SILYBUM MARIANUM [Concomitant]
     Dosage: 100 MG, BID

REACTIONS (2)
  - Dementia [Unknown]
  - Neuropathy peripheral [Unknown]
